FAERS Safety Report 5474699-5 (Version None)
Quarter: 2007Q3

REPORT INFORMATION
  Report Type: 
  Country: None (occurrence: None)
  Receive Date: 20070927
  Receipt Date: 20070927
  Transmission Date: 20080115
  Serious: Yes (Disabling, Other)
  Sender: FDA-Public Use
  Company Number: None

PATIENT
  Age: 32 Year
  Sex: Female
  Weight: 56.6996 kg

DRUGS (7)
  1. MIGRANAL [Suspect]
     Indication: MIGRAINE
     Dosage: UP TO 3 SPRAYS IN EACH NOSTRIL 3-4/WEEK NASAL
     Route: 045
     Dates: start: 20070501, end: 20070816
  2. ESTROSTEP [Concomitant]
  3. CRESTOR [Concomitant]
  4. LEXAPRO [Concomitant]
  5. MULTI-VITAMIN [Concomitant]
  6. VITAMIN E [Concomitant]
  7. CALCIUM W/D [Concomitant]

REACTIONS (5)
  - AGITATION [None]
  - ANXIETY [None]
  - FEELING JITTERY [None]
  - PANIC ATTACK [None]
  - PERFORMANCE STATUS DECREASED [None]
